FAERS Safety Report 6314007-0 (Version None)
Quarter: 2009Q3

REPORT INFORMATION
  Report Type: 
  Country: None (occurrence: None)
  Receive Date: 20090818
  Receipt Date: 20090807
  Transmission Date: 20100115
  Serious: Yes (Hospitalization, Other)
  Sender: FDA-Public Use
  Company Number: US-BAXTER-2009BH012403

PATIENT
  Age: 79 Year
  Sex: Male

DRUGS (26)
  1. DIANEAL [Suspect]
     Indication: PERITONEAL DIALYSIS
     Route: 033
     Dates: start: 20060101
  2. EXTRANEAL [Suspect]
     Indication: PERITONEAL DIALYSIS
     Route: 033
     Dates: start: 20060101
  3. ALLOPURINOL [Concomitant]
     Indication: GOUT
     Route: 048
     Dates: start: 20080525
  4. AMIODARONE HCL [Concomitant]
     Indication: ARRHYTHMIA
     Route: 048
     Dates: start: 20080929
  5. ASPIRIN [Concomitant]
     Indication: ANTICOAGULANT THERAPY
     Route: 048
     Dates: start: 20080929
  6. DIPHENHYDRAMINE HCL [Concomitant]
     Indication: INSOMNIA
     Route: 048
     Dates: start: 20080929
  7. CALCITRIOL [Concomitant]
     Indication: DRUG USE FOR UNKNOWN INDICATION
     Route: 048
     Dates: start: 20080929
  8. CLONAZEPAM [Concomitant]
     Indication: DRUG USE FOR UNKNOWN INDICATION
     Route: 048
     Dates: start: 20080929
  9. COLACE [Concomitant]
     Indication: CONSTIPATION
     Route: 048
     Dates: start: 20080929
  10. WARFARIN SODIUM [Concomitant]
     Indication: ANTICOAGULANT THERAPY
     Route: 048
     Dates: start: 20080929
  11. GLUCOTROL [Concomitant]
     Indication: DIABETES MELLITUS
     Route: 048
     Dates: start: 20080525
  12. GENTAMICIN [Concomitant]
     Indication: INTRAVENOUS CATHETER MANAGEMENT
     Route: 061
     Dates: start: 20080929
  13. HYDROCODONE [Concomitant]
     Indication: ANALGESIA
     Route: 048
     Dates: start: 20090110
  14. NPH INSULIN [Concomitant]
     Indication: DIABETES MELLITUS
     Route: 058
     Dates: start: 20080929
  15. LOPRESSOR [Concomitant]
     Indication: HYPERTENSION
     Route: 048
     Dates: start: 20081120
  16. MIRALAX [Concomitant]
     Indication: CONSTIPATION
     Route: 048
     Dates: start: 20080929
  17. NEPHRO-VITE RX [Concomitant]
     Indication: VITAMIN SUPPLEMENTATION
     Route: 048
     Dates: start: 20080929
  18. PHOSLO [Concomitant]
     Indication: DRUG USE FOR UNKNOWN INDICATION
     Route: 048
     Dates: start: 20080929
  19. POTASSIUM CHLORIDE [Concomitant]
     Indication: SUPPLEMENTATION THERAPY
     Route: 048
     Dates: start: 20080929
  20. PROCTOFOAM [Concomitant]
     Indication: HAEMORRHOIDS
     Route: 061
     Dates: start: 20081023
  21. RENAGEL [Concomitant]
     Indication: DRUG USE FOR UNKNOWN INDICATION
     Route: 048
     Dates: start: 20080929
  22. LEVOTHYROXINE [Concomitant]
     Indication: HYPOTHYROIDISM
     Route: 048
     Dates: start: 20080929
  23. SIMVASTATIN [Concomitant]
     Indication: BLOOD CHOLESTEROL INCREASED
     Route: 048
     Dates: start: 20080929
  24. ARANESP [Concomitant]
     Indication: ANAEMIA
     Route: 042
     Dates: start: 20090422
  25. CALCIUM CARBONATE [Concomitant]
     Indication: CONSTIPATION
     Route: 048
     Dates: start: 20080929
  26. MAGNESIUM CARBONATE [Concomitant]
     Indication: CONSTIPATION
     Route: 048
     Dates: start: 20080929

REACTIONS (2)
  - BRADYCARDIA [None]
  - PANCREATITIS [None]
